FAERS Safety Report 18941784 (Version 1)
Quarter: 2021Q1

REPORT INFORMATION
  Report Type: Spontaneous
  Country: US (occurrence: US)
  Receive Date: 20210225
  Receipt Date: 20210225
  Transmission Date: 20210420
  Serious: No
  Sender: FDA-Public Use
  Company Number: US-BRACCO-2020US03551

PATIENT
  Age: 55 Year
  Sex: Female

DRUGS (1)
  1. ISOVUE 370 [Suspect]
     Active Substance: IOPAMIDOL
     Indication: COMPUTERISED TOMOGRAM
     Dosage: 100 ML, SINGLE
     Route: 042
     Dates: start: 20200818, end: 20200818

REACTIONS (4)
  - Skin injury [Unknown]
  - Accidental exposure to product [Unknown]
  - Trichorrhexis [Unknown]
  - Alopecia [Unknown]

NARRATIVE: CASE EVENT DATE: 20200818
